FAERS Safety Report 5729130-9 (Version None)
Quarter: 2008Q2

REPORT INFORMATION
  Report Type: 
  Country: None (occurrence: None)
  Receive Date: 20080505
  Receipt Date: 20080505
  Transmission Date: 20081010
  Serious: Yes (Life-Threatening, Disabling, Other)
  Sender: FDA-Public Use
  Company Number: None

PATIENT
  Sex: Female
  Weight: 47.6277 kg

DRUGS (2)
  1. CHANTIX [Suspect]
     Indication: SMOKING CESSATION THERAPY
     Dosage: .5 MG 1 PER DAY 1 MG 1 PER DAY
     Dates: start: 20070321
  2. CHANTIX [Suspect]
     Indication: SMOKING CESSATION THERAPY
     Dosage: .5 MG 1 PER DAY 1 MG 1 PER DAY
     Dates: start: 20070421

REACTIONS (83)
  - ACNE [None]
  - AGGRESSION [None]
  - AGITATION [None]
  - ANAEMIA [None]
  - ANXIETY [None]
  - ARTHRALGIA [None]
  - ARTHRITIS [None]
  - BACK PAIN [None]
  - BALANCE DISORDER [None]
  - BIPOLAR DISORDER [None]
  - BLINDNESS TRANSIENT [None]
  - BRADYPHRENIA [None]
  - CARDIAC FLUTTER [None]
  - CHEST DISCOMFORT [None]
  - CHEST PAIN [None]
  - CHILLS [None]
  - DEAFNESS [None]
  - DEPRESSION [None]
  - DERMATITIS [None]
  - DIARRHOEA [None]
  - DISORIENTATION [None]
  - DISSOCIATION [None]
  - DISTURBANCE IN ATTENTION [None]
  - DIZZINESS [None]
  - DRUG HYPERSENSITIVITY [None]
  - DRY EYE [None]
  - DRY SKIN [None]
  - EMOTIONAL DISORDER [None]
  - ERUCTATION [None]
  - EUPHORIC MOOD [None]
  - EYE IRRITATION [None]
  - EYE PAIN [None]
  - GINGIVITIS [None]
  - HOT FLUSH [None]
  - HYPERHIDROSIS [None]
  - HYPERSENSITIVITY [None]
  - HYPERTENSION [None]
  - INFLUENZA [None]
  - IRRITABILITY [None]
  - LEUKOCYTOSIS [None]
  - LIBIDO DECREASED [None]
  - LIVER FUNCTION TEST ABNORMAL [None]
  - MENSTRUAL DISORDER [None]
  - MENTAL IMPAIRMENT [None]
  - MICTURITION DISORDER [None]
  - MIGRAINE [None]
  - MOOD SWINGS [None]
  - MOUTH ULCERATION [None]
  - MUSCLE SPASMS [None]
  - MYALGIA [None]
  - MYOSITIS [None]
  - NIGHT BLINDNESS [None]
  - NOCTURIA [None]
  - OEDEMA [None]
  - OESOPHAGITIS [None]
  - PALPITATIONS [None]
  - PAROSMIA [None]
  - PERIPHERAL ISCHAEMIA [None]
  - PHOTOPHOBIA [None]
  - PHOTOSENSITIVITY REACTION [None]
  - POLYURIA [None]
  - POST-TRAUMATIC STRESS DISORDER [None]
  - PSYCHOMOTOR HYPERACTIVITY [None]
  - PSYCHOTIC DISORDER [None]
  - PYREXIA [None]
  - RESPIRATORY DISORDER [None]
  - RESTLESS LEGS SYNDROME [None]
  - RESTLESSNESS [None]
  - SENSORY DISTURBANCE [None]
  - SEXUAL DYSFUNCTION [None]
  - SUICIDAL IDEATION [None]
  - SYNCOPE [None]
  - TACHYCARDIA [None]
  - THINKING ABNORMAL [None]
  - THIRST [None]
  - TINNITUS [None]
  - TREMOR [None]
  - URETHRAL SYNDROME [None]
  - URTICARIA [None]
  - VERTIGO [None]
  - VISION BLURRED [None]
  - VISUAL DISTURBANCE [None]
  - VISUAL FIELD DEFECT [None]
